FAERS Safety Report 4677651-2 (Version None)
Quarter: 2005Q2

REPORT INFORMATION
  Report Type: 
  Country: None (occurrence: None)
  Receive Date: 20050527
  Receipt Date: 20050527
  Transmission Date: 20051028
  Serious: No
  Sender: FDA-Public Use
  Company Number: None

PATIENT
  Sex: Male
  Weight: 85.3 kg

DRUGS (4)
  1. PACLITAXEL [Suspect]
     Indication: PROSTATE CANCER
     Dates: start: 20030710
  2. ESTRAMUSTINE [Suspect]
  3. ETOPOSIDE [Suspect]
  4. RADIATION THERAPY [Suspect]

REACTIONS (1)
  - FEBRILE NEUTROPENIA [None]
